FAERS Safety Report 15999459 (Version 1)
Quarter: 2019Q1

REPORT INFORMATION
  Report Type: Spontaneous
  Country: US (occurrence: US)
  Receive Date: 20190222
  Receipt Date: 20190222
  Transmission Date: 20190418
  Serious: Yes (Other)
  Sender: FDA-Public Use
  Company Number: None

PATIENT
  Age: 54 Year
  Sex: Female
  Weight: 67.5 kg

DRUGS (1)
  1. DEXPAK 13 [Suspect]
     Active Substance: DEXAMETHASONE
     Indication: BRONCHITIS
     Dates: start: 20190124, end: 20190205

REACTIONS (1)
  - Hypertension [None]

NARRATIVE: CASE EVENT DATE: 20190206
